FAERS Safety Report 23448411 (Version 6)
Quarter: 2025Q1

REPORT INFORMATION
  Report Type: Spontaneous
  Country: US (occurrence: US)
  Receive Date: 20240127
  Receipt Date: 20250107
  Transmission Date: 20250409
  Serious: Yes (Other)
  Sender: JOHNSON AND JOHNSON
  Company Number: US-JNJFOC-20240166284

PATIENT
  Age: 74 Year
  Sex: Male

DRUGS (9)
  1. TALVEY [Suspect]
     Active Substance: TALQUETAMAB-TGVS
     Indication: Plasma cell myeloma
     Dosage: CON: 0.4 PER (SIC)
     Route: 058
     Dates: start: 20240115
  2. TALVEY [Suspect]
     Active Substance: TALQUETAMAB-TGVS
     Route: 058
     Dates: start: 20240101
  3. FINASTERIDE [Concomitant]
     Active Substance: FINASTERIDE
     Indication: Benign prostatic hyperplasia
     Route: 065
     Dates: start: 200904
  4. DOXAZOSIN [Concomitant]
     Active Substance: DOXAZOSIN MESYLATE
     Indication: Benign prostatic hyperplasia
     Route: 065
     Dates: start: 200904
  5. LYRICA [Concomitant]
     Active Substance: PREGABALIN
     Indication: Neuropathy peripheral
     Route: 065
     Dates: start: 201704
  6. VITAMIN D3 [Concomitant]
     Active Substance: CHOLECALCIFEROL
     Indication: Bone disorder
     Route: 065
     Dates: start: 2017
  7. CALCIUM [Concomitant]
     Active Substance: CALCIUM
     Indication: Bone disorder
     Route: 065
     Dates: start: 2017
  8. ACYCLOVIR [Concomitant]
     Active Substance: ACYCLOVIR
     Dates: start: 202401
  9. BACTRIM [Concomitant]
     Active Substance: SULFAMETHOXAZOLE\TRIMETHOPRIM
     Dates: start: 202401

REACTIONS (11)
  - White blood cell count decreased [Not Recovered/Not Resolved]
  - Nail disorder [Unknown]
  - Nail discolouration [Not Recovered/Not Resolved]
  - Skin exfoliation [Unknown]
  - Platelet count decreased [Not Recovered/Not Resolved]
  - Ageusia [Recovering/Resolving]
  - Rash [Not Recovered/Not Resolved]
  - Nail disorder [Recovering/Resolving]
  - Pruritus [Not Recovered/Not Resolved]
  - Off label use [Unknown]
  - Onychomadesis [Unknown]

NARRATIVE: CASE EVENT DATE: 20240101
